FAERS Safety Report 9285631 (Version 1)
Quarter: 2013Q2

REPORT INFORMATION
  Report Type: Spontaneous
  Country: GB (occurrence: None)
  Receive Date: 20130507
  Receipt Date: 20130507
  Transmission Date: 20140414
  Serious: Yes (Hospitalization)
  Sender: FDA-Public Use
  Company Number: 1696934

PATIENT
  Age: 51 Year
  Sex: Female

DRUGS (2)
  1. MEROPENEM [Suspect]
     Indication: PSEUDOMONAS BRONCHITIS
     Dosage: 1 G GRAMS, 3 DAY, INTRAVENOUS (NOT OTHERWISE SPECIFIED)
     Route: 042
     Dates: start: 20130328, end: 20130412
  2. CIPROFLOXACIN [Suspect]
     Route: 042
     Dates: start: 20130328, end: 20130412

REACTIONS (7)
  - Drug interaction [None]
  - Chest pain [None]
  - Dyspnoea [None]
  - Wheezing [None]
  - Pain in extremity [None]
  - Neck pain [None]
  - Back pain [None]
